FAERS Safety Report 5065564-6 (Version None)
Quarter: 2006Q3

REPORT INFORMATION
  Report Type: 
  Country: None (occurrence: None)
  Receive Date: 20060714
  Receipt Date: 20060522
  Transmission Date: 20061208
  Serious: No
  Sender: FDA-Public Use
  Company Number: 2006SP002135

PATIENT
  Age: 72 Year
  Sex: Female
  Weight: 56.6996 kg

DRUGS (8)
  1. LUNESTA [Suspect]
     Indication: INSOMNIA
     Dosage: 3 MG; ORAL
     Route: 048
     Dates: start: 20060501
  2. MAXZIDE [Concomitant]
  3. COZAAR [Concomitant]
  4. THEOPHYLLINE [Concomitant]
  5. PREDNISONE [Concomitant]
  6. ALBUTEROL [Concomitant]
  7. FLOVENT [Concomitant]
  8. TIOTROPIUM BROMIDE [Concomitant]

REACTIONS (1)
  - SOMNOLENCE [None]
